FAERS Safety Report 11199511 (Version 1)
Quarter: 2015Q2

REPORT INFORMATION
  Report Type: Other
  Country: GB (occurrence: GB)
  Receive Date: 20150618
  Receipt Date: 20150618
  Transmission Date: 20150821
  Serious: Yes (Disabling)
  Sender: FDA-Public Use
  Company Number: GB-MYLANLABS-2015M1018815

PATIENT

DRUGS (2)
  1. RISPERIDONE. [Suspect]
     Active Substance: RISPERIDONE
     Dosage: 250 ?G, BID (INCREASED DUE TO INADEQUATE RESPONSE.)
     Route: 002
     Dates: start: 20140624, end: 20141016
  2. RISPERIDONE. [Suspect]
     Active Substance: RISPERIDONE
     Indication: RESTLESSNESS
     Dosage: 250 ?G, UNK (250MCG AT 6PM AND AS NECESSARY)
     Route: 002
     Dates: start: 20140613, end: 20140623

REACTIONS (2)
  - Sedation [Recovered/Resolved]
  - Fall [Unknown]

NARRATIVE: CASE EVENT DATE: 20140707
